FAERS Safety Report 21954818 (Version 3)
Quarter: 2023Q1

REPORT INFORMATION
  Report Type: Spontaneous
  Country: DE (occurrence: DE)
  Receive Date: 20230205
  Receipt Date: 20230302
  Transmission Date: 20230418
  Serious: Yes (Other)
  Sender: FDA-Public Use
  Company Number: DE-ROCHE-3262474

PATIENT
  Sex: Female

DRUGS (17)
  1. DOXORUBICIN [Suspect]
     Active Substance: DOXORUBICIN
     Indication: Diffuse large B-cell lymphoma
     Dosage: FIRST LINE WITH RITUXIMAB, AS A PART OF CHOP
     Route: 065
     Dates: start: 20210701, end: 20211101
  2. CYCLOPHOSPHAMIDE [Suspect]
     Active Substance: CYCLOPHOSPHAMIDE
     Indication: Diffuse large B-cell lymphoma
     Dosage: FIRST LINE WITH RITUXIMAB, AS A PART OF CHOP
     Route: 065
     Dates: start: 20210701, end: 20211101
  3. BENDAMUSTINE [Suspect]
     Active Substance: BENDAMUSTINE
     Indication: Diffuse large B-cell lymphoma
     Dosage: THIRD LINE WITH POLATUZUMAB AND RITUXIMAB, THREE TIMES
     Route: 065
     Dates: start: 20220613, end: 20220920
  4. POLATUZUMAB VEDOTIN [Suspect]
     Active Substance: POLATUZUMAB VEDOTIN
     Indication: Diffuse large B-cell lymphoma
     Dosage: THIRD LINE WITH RITUXIMAB AND BENDAMUSTINE, THREE TIMES
     Route: 065
     Dates: start: 20220613, end: 20220920
  5. PREDNISOLONE [Suspect]
     Active Substance: PREDNISOLONE
     Indication: Diffuse large B-cell lymphoma
     Dosage: FOURTH LINE WITH OBINUTUZUMAB, IBRUTINIB, VENETCLAX, LENALOMIDE AND RADIOTHERAPY
     Route: 065
     Dates: start: 20220927, end: 20221117
  6. VENETOCLAX [Suspect]
     Active Substance: VENETOCLAX
     Indication: Diffuse large B-cell lymphoma
     Dosage: FOURTH LINE WITH OBINUTUZUMAB, IBRUTINIB, PREDNISOLONE, LENALOMIDE AND RADIOTHERAPY
     Route: 065
     Dates: start: 20220927, end: 20221117
  7. LENALIDOMIDE [Suspect]
     Active Substance: LENALIDOMIDE
     Indication: Diffuse large B-cell lymphoma
     Dosage: FOURTH LINE WITH OBINUTUZUMAB, IBRUTINIB, PREDNISOLONE, VENETOCLAX AND RADIOTHERAPY
     Route: 065
     Dates: start: 20220927, end: 20221117
  8. RITUXIMAB [Suspect]
     Active Substance: RITUXIMAB
     Indication: Diffuse large B-cell lymphoma
     Dosage: FIRST LINE WITH CHOP
     Route: 065
     Dates: start: 20210701, end: 20211101
  9. RITUXIMAB [Suspect]
     Active Substance: RITUXIMAB
     Dosage: SECOND LINE WITH DHAP, TWICE
     Route: 065
     Dates: start: 20220330, end: 20220525
  10. RITUXIMAB [Suspect]
     Active Substance: RITUXIMAB
     Dosage: THIRD LINE WITH POLATUZUMAB AND BENDAMUSTINE, THREE TIMES
     Route: 065
     Dates: start: 20220613, end: 20220920
  11. OBINUTUZUMAB [Suspect]
     Active Substance: OBINUTUZUMAB
     Indication: Diffuse large B-cell lymphoma
     Dosage: FOURTH LINE WITH VENETOCLAX, IBRUTINIB, PREDNISOLONE, LENALOMIDE AND RADIOTHERAPY
     Route: 042
     Dates: start: 20220927, end: 20221117
  12. IMBRUVICA [Suspect]
     Active Substance: IBRUTINIB
     Indication: Diffuse large B-cell lymphoma
     Dosage: FOURTH LINE WITH OBINUTUZUMAB, VENETOCLAX, PREDNISOLONE, LENALOMIDE AND RADIOTHERAPY
     Route: 065
     Dates: start: 20220927, end: 20221117
  13. CYTARABINE [Suspect]
     Active Substance: CYTARABINE
     Indication: Diffuse large B-cell lymphoma
     Dosage: SECOND LINE WITH RITUXIMAB, TWICE, AS A PART OF DHAP
     Route: 065
     Dates: start: 20220330, end: 20220525
  14. CISPLATIN [Suspect]
     Active Substance: CISPLATIN
     Indication: Diffuse large B-cell lymphoma
     Dosage: SECOND LINE WITH RITUXIMAB, TWICE, AS A PART OF DHAP
     Route: 065
     Dates: start: 20220330, end: 20220525
  15. DEXAMETHASONE [Suspect]
     Active Substance: DEXAMETHASONE
     Indication: Diffuse large B-cell lymphoma
     Dosage: SECOND LINE WITH RITUXIMAB, TWICE, AS A PART OF DHAP
     Route: 065
     Dates: start: 20220330, end: 20220525
  16. PREDNISONE [Suspect]
     Active Substance: PREDNISONE
     Indication: Diffuse large B-cell lymphoma
     Dosage: FIRST LINE WITH RITUXIMAB, AS A PART OF CHOP
     Route: 065
     Dates: start: 20210701, end: 20211101
  17. VINCRISTINE SULFATE [Suspect]
     Active Substance: VINCRISTINE SULFATE
     Indication: Diffuse large B-cell lymphoma
     Dosage: FIRST LINE WITH RITUXIMAB, AS A PART OF CHOP
     Route: 065
     Dates: start: 20210701, end: 20211101

REACTIONS (1)
  - Lymphoma [Unknown]
